FAERS Safety Report 9959011 (Version 1)
Quarter: 2014Q1

REPORT INFORMATION
  Report Type: Spontaneous
  Country: US (occurrence: None)
  Receive Date: 20140228
  Receipt Date: 20140228
  Transmission Date: 20141002
  Serious: No
  Sender: FDA-Public Use
  Company Number: None

PATIENT
  Age: 76 Year
  Sex: Female
  Weight: 131 kg

DRUGS (7)
  1. DULERA [Suspect]
     Indication: DYSPNOEA
     Dosage: 2 PUFFS TWICE DAILY BY MOUTH
     Route: 048
     Dates: start: 20131119, end: 20140201
  2. DULERA [Suspect]
     Indication: CONDITION AGGRAVATED
     Dosage: 2 PUFFS TWICE DAILY BY MOUTH
     Route: 048
     Dates: start: 20131119, end: 20140201
  3. TAMBOCOR [Concomitant]
  4. LIPITOR [Concomitant]
  5. FLONASE [Concomitant]
  6. VITAMIN D3 [Concomitant]
  7. TYLENOL [Concomitant]

REACTIONS (1)
  - Tremor [None]
